FAERS Safety Report 8281157-1 (Version None)
Quarter: 2012Q2

REPORT INFORMATION
  Report Type: 
  Country: None (occurrence: None)
  Receive Date: 20120413
  Receipt Date: 20120404
  Transmission Date: 20120825
  Serious: No
  Sender: FDA-Public Use
  Company Number: US-BIOGENIDEC-2011BI027591

PATIENT
  Sex: Female

DRUGS (1)
  1. TYSABRI [Suspect]
     Indication: MULTIPLE SCLEROSIS
     Route: 042
     Dates: start: 20100603

REACTIONS (8)
  - SINUSITIS [None]
  - FATIGUE [None]
  - BACK PAIN [None]
  - COGNITIVE DISORDER [None]
  - BALANCE DISORDER [None]
  - DIPLOPIA [None]
  - GAIT DISTURBANCE [None]
  - PARAESTHESIA [None]
